FAERS Safety Report 8779323 (Version 1)
Quarter: 2012Q4

REPORT INFORMATION
  Report Type: 
  Country: US (occurrence: US)
  Receive Date: 20120912
  Receipt Date: 20120912
  Transmission Date: 20130627
  Serious: Yes (Other)
  Sender: FDA-Public Use
  Company Number: US-AMGEN-USASP2012057386

PATIENT
  Age: 81 Year
  Sex: Female

DRUGS (1)
  1. ENBREL [Suspect]
     Indication: RHEUMATOID ARTHRITIS
     Dosage: 50 mg, qwk
     Route: 058
     Dates: start: 20070702, end: 20120615

REACTIONS (4)
  - Cerebrovascular accident [Recovered/Resolved]
  - Urticaria [Unknown]
  - Arthralgia [Not Recovered/Not Resolved]
  - Finger deformity [Not Recovered/Not Resolved]
